FAERS Safety Report 4528856-2 (Version None)
Quarter: 2004Q4

REPORT INFORMATION
  Report Type: 
  Country: None (occurrence: None)
  Receive Date: 20041215
  Receipt Date: 20041215
  Transmission Date: 20050328
  Serious: Yes (Hospitalization)
  Sender: FDA-Public Use
  Company Number: None

PATIENT
  Age: 87 Year
  Sex: Male
  Weight: 74.6 kg

DRUGS (14)
  1. WARFARIN SODIUM [Suspect]
     Indication: ATRIAL FIBRILLATION
     Dosage: VARIED
  2. ASPIRIN [Suspect]
     Indication: STENT PLACEMENT
     Dosage: 81 MG DAILY CHRONIC
  3. PLAVIX [Suspect]
     Dosage: 75 MG DAILY
  4. BUMET [Concomitant]
  5. LANOXIN [Concomitant]
  6. SURFAK [Concomitant]
  7. IMDUR [Concomitant]
  8. POTASSIUM [Concomitant]
  9. DIOVAN [Concomitant]
  10. XANAX [Concomitant]
  11. AMBIEN [Concomitant]
  12. DULCOLAX [Concomitant]
  13. MOM [Concomitant]
  14. PERCOCET [Concomitant]

REACTIONS (6)
  - CELLULITIS [None]
  - DISCOMFORT [None]
  - ECCHYMOSIS [None]
  - ERYTHEMA [None]
  - HAEMATOMA [None]
  - INTERNATIONAL NORMALISED RATIO INCREASED [None]
